FAERS Safety Report 4497262-1 (Version None)
Quarter: 2004Q3

REPORT INFORMATION
  Report Type: 
  Country: None (occurrence: None)
  Receive Date: 20040927
  Receipt Date: 20040625
  Transmission Date: 20050211
  Serious: No
  Sender: FDA-Public Use
  Company Number: USA040671144

PATIENT
  Age: 57 Year
  Sex: Male

DRUGS (2)
  1. STRATTERA [Suspect]
     Indication: ATTENTION DEFICIT/HYPERACTIVITY DISORDER
     Dosage: 25 MG DAY
     Dates: start: 20040625
  2. XANAX (ALPRAZOLAM DUM) [Concomitant]

REACTIONS (4)
  - DIZZINESS [None]
  - EXCITABILITY [None]
  - LIBIDO INCREASED [None]
  - MUSCLE TIGHTNESS [None]
